FAERS Safety Report 4388304-2 (Version None)
Quarter: 2004Q2

REPORT INFORMATION
  Report Type: 
  Country: None (occurrence: None)
  Receive Date: 20040629
  Receipt Date: 20040618
  Transmission Date: 20050107
  Serious: Yes (Hospitalization)
  Sender: FDA-Public Use
  Company Number: 2004GB01316

PATIENT
  Age: 65 Year
  Sex: Male

DRUGS (5)
  1. CRESTOR [Suspect]
     Dosage: 10 MG DAILY PO
     Route: 048
     Dates: end: 20040514
  2. ZESTRIL [Suspect]
     Indication: BLOOD PRESSURE
     Dosage: 20 MG QD PO
     Route: 048
     Dates: end: 20040514
  3. TEGRETOL [Concomitant]
  4. CARDICOR [Concomitant]
  5. ISTIN [Concomitant]

REACTIONS (1)
  - PURPURA [None]
